FAERS Safety Report 5850689-5 (Version None)
Quarter: 2008Q3

REPORT INFORMATION
  Report Type: 
  Country: None (occurrence: None)
  Receive Date: 20080820
  Receipt Date: 20080818
  Transmission Date: 20090109
  Serious: Yes (Hospitalization)
  Sender: FDA-Public Use
  Company Number: GB-BRISTOL-MYERS SQUIBB COMPANY-14244859

PATIENT
  Age: 74 Year
  Sex: Male

DRUGS (2)
  1. HYDROXYUREA [Suspect]
     Dosage: 14SEP2004 TO 23DEC2004(101 DAYS) AND 13APR2005 TO 15SEP2005
     Dates: start: 20050413, end: 20050915
  2. GLEEVEC [Suspect]
     Indication: CHRONIC MYELOID LEUKAEMIA
     Dates: start: 20050915

REACTIONS (1)
  - ANKLE FRACTURE [None]
